FAERS Safety Report 25032318 (Version 1)
Quarter: 2025Q1

REPORT INFORMATION
  Report Type: Spontaneous
  Country: US (occurrence: US)
  Receive Date: 20250303
  Receipt Date: 20250303
  Transmission Date: 20250409
  Serious: No
  Sender: TEVA
  Company Number: US-TEVA-VS-3298113

PATIENT
  Sex: Male

DRUGS (6)
  1. UZEDY [Suspect]
     Active Substance: RISPERIDONE
     Indication: Schizophrenia
     Dosage: UNDER THE SKIN
     Route: 058
     Dates: start: 202403
  2. UZEDY [Suspect]
     Active Substance: RISPERIDONE
     Route: 058
  3. UZEDY [Suspect]
     Active Substance: RISPERIDONE
     Route: 058
  4. UZEDY [Suspect]
     Active Substance: RISPERIDONE
     Route: 058
     Dates: start: 20250211
  5. LITHIUM [Concomitant]
     Active Substance: LITHIUM
     Indication: Product used for unknown indication
     Route: 065
  6. LAMICTAL [Concomitant]
     Active Substance: LAMOTRIGINE
     Indication: Product used for unknown indication
     Route: 065

REACTIONS (2)
  - Therapeutic response shortened [Unknown]
  - Aggression [Unknown]
